FAERS Safety Report 9247886 (Version 2)
Quarter: 2013Q2

REPORT INFORMATION
  Report Type: Spontaneous
  Country: US (occurrence: US)
  Receive Date: 20130423
  Receipt Date: 20130521
  Transmission Date: 20140414
  Serious: No
  Sender: FDA-Public Use
  Company Number: US-PFIZER INC-2013121918

PATIENT
  Age: 58 Year
  Sex: Female
  Weight: 72 kg

DRUGS (19)
  1. SOMAVERT [Suspect]
     Indication: ACROMEGALY
     Dosage: 10 MG, 1X/DAY
     Route: 058
     Dates: start: 20130409
  2. SINGULAIR [Concomitant]
     Dosage: 10 MG, 1X/DAY
  3. RESTASIS [Concomitant]
     Dosage: UNK, EYE DROP, X2DAY
  4. ASTEPRO [Concomitant]
     Dosage: UNK, DAILY
     Route: 045
  5. MARINOL [Concomitant]
     Dosage: 5 MG, HOUR OF SLEEP
  6. PREDNISONE [Concomitant]
     Dosage: UNK
  7. DILAUDID [Concomitant]
     Dosage: UNK
  8. SYNTHROID [Concomitant]
     Dosage: 112 UG, 1X/DAY
  9. HYDROCHLOROTHIAZID [Concomitant]
     Dosage: 25 MG, 1X/DAY
  10. ZOFRAN [Concomitant]
     Dosage: 8 MG, AS NEEDED
  11. PRILOSEC [Concomitant]
     Dosage: UNK
  12. MOBIC [Concomitant]
     Dosage: 15 MG, DAY
  13. HYDROCORT [Concomitant]
     Dosage: 20MG MORNING, 10MG AFTERNOON
  14. SENNA [Concomitant]
     Dosage: UNK
  15. VITAMIN D [Concomitant]
     Dosage: 1000 MG, 2X/DAY
  16. PERCOCET [Concomitant]
     Dosage: 5/325 AS NEEDED
  17. CLIMARA [Concomitant]
     Dosage: 0.06 MG, WEEKLY
  18. GOLYTELY [Concomitant]
     Dosage: UNK
  19. DOMPERIDONE [Concomitant]
     Dosage: 40 MG, 2X/DAY

REACTIONS (4)
  - Gastrointestinal pain [Recovering/Resolving]
  - Diarrhoea [Recovering/Resolving]
  - Diarrhoea [Recovering/Resolving]
  - Abdominal pain [Recovering/Resolving]
